FAERS Safety Report 4647959-5 (Version None)
Quarter: 2005Q2

REPORT INFORMATION
  Report Type: 
  Country: None (occurrence: None)
  Receive Date: 20050428
  Receipt Date: 20050418
  Transmission Date: 20051028
  Serious: Yes (Hospitalization)
  Sender: FDA-Public Use
  Company Number: DE-ABBOTT-05P-062-0297980-00

PATIENT
  Sex: Female
  Weight: 55 kg

DRUGS (7)
  1. KLACID [Suspect]
     Indication: SUICIDE ATTEMPT
     Route: 048
     Dates: start: 20050418, end: 20050418
  2. METRONIDAZOLE [Suspect]
     Indication: SUICIDE ATTEMPT
     Route: 048
     Dates: start: 20050418, end: 20050418
  3. HYOSCINE HBR HYT [Suspect]
     Indication: SUICIDE ATTEMPT
     Route: 048
     Dates: start: 20050418, end: 20050418
  4. ACETAMINOPHEN [Suspect]
     Indication: SUICIDE ATTEMPT
     Route: 048
     Dates: start: 20050418, end: 20050418
  5. LEVOCETIRIZINE DIHYDROCHLORIDE [Suspect]
     Indication: SUICIDE ATTEMPT
     Route: 048
     Dates: start: 20050418, end: 20050418
  6. PANTOPRAZOLE SODIUM [Suspect]
     Indication: SUICIDE ATTEMPT
     Route: 048
     Dates: start: 20050418, end: 20050418
  7. GLIBENCLAMIDE [Suspect]
     Indication: SUICIDE ATTEMPT
     Route: 048
     Dates: start: 20050418, end: 20050418

REACTIONS (2)
  - COMA [None]
  - SUICIDE ATTEMPT [None]
